FAERS Safety Report 24527169 (Version 1)
Quarter: 2024Q4

REPORT INFORMATION
  Report Type: Report from Study
  Country: US (occurrence: US)
  Receive Date: 20241021
  Receipt Date: 20241021
  Transmission Date: 20250114
  Serious: No
  Sender: ROCHE
  Company Number: US-ROCHE-3493164

PATIENT
  Age: 59 Year
  Sex: Female

DRUGS (6)
  1. COBIMETINIB [Suspect]
     Active Substance: COBIMETINIB
     Indication: Rosai-Dorfman syndrome
     Dosage: 20 AND 60 MG OF SINGLE-AGENT DAILY
     Route: 065
  2. RITUXIMAB [Concomitant]
     Active Substance: RITUXIMAB
     Dosage: THERAPY OVER ONE MONTH
     Route: 065
  3. PREDNISONE [Concomitant]
     Active Substance: PREDNISONE
  4. THALIDOMIDE [Concomitant]
     Active Substance: THALIDOMIDE
     Dosage: 2.5 MONTHS
  5. TRAMETINIB [Concomitant]
     Active Substance: TRAMETINIB
  6. CLADRIBINE [Concomitant]
     Active Substance: CLADRIBINE

REACTIONS (1)
  - Drug intolerance [Unknown]
